FAERS Safety Report 9397075 (Version 3)
Quarter: 2013Q3

REPORT INFORMATION
  Report Type: Spontaneous
  Country: US (occurrence: US)
  Receive Date: 20130712
  Receipt Date: 20130809
  Transmission Date: 20140515
  Serious: No
  Sender: FDA-Public Use
  Company Number: US-PFIZER INC-2013202531

PATIENT
  Age: 50 Year
  Sex: Female
  Weight: 67.57 kg

DRUGS (7)
  1. NEURONTIN [Suspect]
     Dosage: 400 MG, 7X/DAY
     Route: 048
  2. DENAVIR [Concomitant]
     Dosage: 1 % ONCE DAILY AS NEEDED
     Route: 061
     Dates: start: 20110524
  3. BACLOFEN [Concomitant]
     Dosage: 10 MG, ONE TABLET SEVEN TIMES PER DAY AS  NEEDED
     Route: 048
     Dates: start: 20110524
  4. MIRALAX [Concomitant]
     Indication: CONSTIPATION
     Dosage: UNK
     Route: 048
  5. VICODIN [Concomitant]
     Indication: PAIN
     Dosage: 500 MG -5 MG 4 TIMES A DAY AS NEEDED
     Route: 048
  6. CLONAZEPAM [Concomitant]
     Dosage: 0.5 MG, ONE TABLET SEVEN TIMES PER DAY
     Route: 048
     Dates: start: 20121127
  7. SENOKOT [Concomitant]
     Dosage: 8.6 MG FOUR TABLETS AT NIGHT
     Route: 048

REACTIONS (7)
  - Vertigo positional [Unknown]
  - Neck pain [Unknown]
  - Headache [Unknown]
  - Muscle spasms [Unknown]
  - Musculoskeletal stiffness [Unknown]
  - Blood pressure increased [Unknown]
  - Complex regional pain syndrome [Unknown]
